FAERS Safety Report 6897291-4 (Version None)
Quarter: 2010Q3

REPORT INFORMATION
  Report Type: 
  Country: None (occurrence: None)
  Receive Date: 20100802
  Receipt Date: 20070430
  Transmission Date: 20110219
  Serious: No
  Sender: FDA-Public Use
  Company Number: US-PFIZER INC-2007035642

PATIENT
  Age: 89 Year
  Sex: Male

DRUGS (7)
  1. LYRICA [Suspect]
     Indication: SCIATICA
     Dates: start: 20061101
  2. MOTRIN [Concomitant]
  3. TYLENOL [Concomitant]
  4. MULTI-VITAMINS [Concomitant]
  5. VITAMIN B COMPLEX CAP [Concomitant]
  6. GLUCOSAMINE [Concomitant]
  7. FISH OIL [Concomitant]

REACTIONS (3)
  - BALANCE DISORDER [None]
  - CONSTIPATION [None]
  - FAECES DISCOLOURED [None]
